FAERS Safety Report 8092278-0 (Version None)
Quarter: 2012Q1

REPORT INFORMATION
  Report Type: 
  Country: None (occurrence: None)
  Receive Date: 20120129
  Receipt Date: 20111122
  Transmission Date: 20120608
  Serious: No
  Sender: FDA-Public Use
  Company Number: US-ABBOTT-11P-163-0876943-00

PATIENT
  Age: 29 Year
  Sex: Female

DRUGS (3)
  1. SPRINTEC [Concomitant]
     Indication: ORAL CONTRACEPTION
     Dosage: LOW DOSE
     Route: 048
  2. ALPRAZOLAM [Concomitant]
     Indication: ANXIETY
  3. HUMIRA [Suspect]
     Indication: PSORIASIS
     Dates: start: 20110101

REACTIONS (2)
  - INAPPROPRIATE SCHEDULE OF DRUG ADMINISTRATION [None]
  - RESTLESS LEGS SYNDROME [None]
